FAERS Safety Report 14238766 (Version 3)
Quarter: 2017Q4

REPORT INFORMATION
  Report Type: Report from Study
  Country: PR (occurrence: PR)
  Receive Date: 20171130
  Receipt Date: 20171207
  Transmission Date: 20180321
  Serious: Yes (Hospitalization)
  Sender: FDA-Public Use
  Company Number: PR-JNJFOC-20171135669

PATIENT
  Age: 75 Year
  Sex: Male

DRUGS (9)
  1. IMBRUVICA [Suspect]
     Active Substance: IBRUTINIB
     Indication: NON-HODGKIN^S LYMPHOMA
     Route: 048
     Dates: start: 20171121
  2. TYLENOL [Concomitant]
     Active Substance: ACETAMINOPHEN
  3. IMBRUVICA [Suspect]
     Active Substance: IBRUTINIB
     Indication: NON-HODGKIN^S LYMPHOMA
     Route: 048
     Dates: start: 20171101
  4. ZOCOR [Concomitant]
     Active Substance: SIMVASTATIN
  5. AVAPRO [Concomitant]
     Active Substance: IRBESARTAN
  6. MIRALAX [Concomitant]
     Active Substance: POLYETHYLENE GLYCOL 3350
  7. IMBRUVICA [Suspect]
     Active Substance: IBRUTINIB
     Indication: NON-HODGKIN^S LYMPHOMA
     Route: 048
     Dates: start: 20171102, end: 201711
  8. PREDNISONE. [Concomitant]
     Active Substance: PREDNISONE
  9. ZOFRAN [Concomitant]
     Active Substance: ONDANSETRON HYDROCHLORIDE

REACTIONS (9)
  - White blood cell count decreased [Unknown]
  - Headache [Unknown]
  - Neck pain [Unknown]
  - Syncope [Unknown]
  - Platelet count decreased [Unknown]
  - Blood test abnormal [Unknown]
  - Swelling [Recovering/Resolving]
  - Off label use [Unknown]
  - Product use in unapproved indication [Unknown]

NARRATIVE: CASE EVENT DATE: 20171102
